FAERS Safety Report 5073095-2 (Version None)
Quarter: 2006Q3

REPORT INFORMATION
  Report Type: 
  Country: None (occurrence: None)
  Receive Date: 20060802
  Receipt Date: 20060712
  Transmission Date: 20061208
  Serious: Yes (Death)
  Sender: FDA-Public Use
  Company Number: US200607002128

PATIENT
  Age: 12 Year

DRUGS (1)
  1. PROZAC [Suspect]

REACTIONS (1)
  - DEATH [None]
